FAERS Safety Report 10128109 (Version 3)
Quarter: 2014Q2

REPORT INFORMATION
  Report Type: Spontaneous
  Country: CN (occurrence: CN)
  Receive Date: 20140428
  Receipt Date: 20140516
  Transmission Date: 20141212
  Serious: Yes (Hospitalization)
  Sender: FDA-Public Use
  Company Number: CN-JNJFOC-20140413337

PATIENT
  Age: 68 Year
  Sex: Male
  Weight: 47 kg

DRUGS (5)
  1. TYLENOL [Suspect]
     Route: 048
  2. TYLENOL [Suspect]
     Indication: PYREXIA
     Route: 048
     Dates: start: 20130123, end: 20130125
  3. CEFUROXIME SODIUM [Suspect]
     Indication: UPPER RESPIRATORY TRACT INFECTION
     Route: 042
     Dates: start: 20130123, end: 20130125
  4. ASPIRIN [Concomitant]
     Indication: INFARCTION
     Route: 048
     Dates: start: 20130117, end: 20130125
  5. SIMVASTATIN [Concomitant]
     Indication: INFARCTION
     Route: 048
     Dates: start: 20130117, end: 20130125

REACTIONS (1)
  - Rash [Recovering/Resolving]
